FAERS Safety Report 19433845 (Version 3)
Quarter: 2021Q4

REPORT INFORMATION
  Report Type: Spontaneous
  Country: US (occurrence: US)
  Receive Date: 20210618
  Receipt Date: 20211019
  Transmission Date: 20220303
  Serious: Yes (Hospitalization)
  Sender: FDA-Public Use
  Company Number: US-SA-SAC20210416001351

PATIENT
  Age: 2 Year
  Sex: Male

DRUGS (1)
  1. CEREZYME [Suspect]
     Active Substance: IMIGLUCERASE
     Indication: Gaucher^s disease
     Dosage: 800 IU, QOW
     Route: 041
     Dates: start: 20210505

REACTIONS (7)
  - Hospitalisation [Unknown]
  - Abdominal distension [Unknown]
  - Swollen tongue [Unknown]
  - Mouth swelling [Unknown]
  - Eye swelling [Unknown]
  - Swelling [Unknown]
  - Product dose omission issue [Unknown]

NARRATIVE: CASE EVENT DATE: 20210101
